FAERS Safety Report 11003543 (Version 2)
Quarter: 2016Q4

REPORT INFORMATION
  Report Type: Spontaneous
  Country: TW (occurrence: TW)
  Receive Date: 20150409
  Receipt Date: 20161115
  Transmission Date: 20170206
  Serious: Yes (Hospitalization)
  Sender: FDA-Public Use
  Company Number: TW-ACCORD-029842

PATIENT
  Age: 71 Year
  Sex: Female

DRUGS (14)
  1. DOXAZOSIN [Concomitant]
     Active Substance: DOXAZOSIN\DOXAZOSIN MESYLATE
  2. NIFEDIPINE. [Concomitant]
     Active Substance: NIFEDIPINE
  3. ISOSORBIDE. [Concomitant]
     Active Substance: ISOSORBIDE
  4. PROPRANOLOL [Concomitant]
     Active Substance: PROPRANOLOL\PROPRANOLOL HYDROCHLORIDE
  5. VALSARTAN. [Concomitant]
     Active Substance: VALSARTAN
  6. CLOPIDOGREL [Suspect]
     Active Substance: CLOPIDOGREL BISULFATE
     Indication: CORONARY ARTERY DISEASE
     Dates: start: 20130913
  7. ASCORBIC ACID. [Concomitant]
     Active Substance: ASCORBIC ACID
  8. CILOSTAZOL. [Concomitant]
     Active Substance: CILOSTAZOL
  9. FOLIC ACID. [Concomitant]
     Active Substance: FOLIC ACID
  10. CALCIUM PANTOTHENATE/CYANOCOBALAMIN/METHIONINE/NICOTINAMIDE/PYRIDOXINE HYDROCHLORIDE/RIBOFLAVIN/THIA [Concomitant]
  11. ALFACALCIDOL [Concomitant]
     Active Substance: ALFACALCIDOL
  12. ACETYLSALICYLIC ACID [Suspect]
     Active Substance: ASPIRIN
     Indication: CORONARY ARTERY DISEASE
  13. NICORANDIL [Concomitant]
     Active Substance: NICORANDIL
  14. BENZBROMARONE [Concomitant]
     Active Substance: BENZBROMARONE

REACTIONS (5)
  - Cough [Unknown]
  - Pyrexia [Recovered/Resolved]
  - Rhinorrhoea [Unknown]
  - Asthenia [Unknown]
  - Pancytopenia [Recovered/Resolved]

NARRATIVE: CASE EVENT DATE: 20131015
